FAERS Safety Report 5749609-3 (Version None)
Quarter: 2008Q2

REPORT INFORMATION
  Report Type: 
  Country: None (occurrence: None)
  Receive Date: 20080527
  Receipt Date: 20080519
  Transmission Date: 20081010
  Serious: Yes (Other)
  Sender: FDA-Public Use
  Company Number: GB-BAYER-200811032BNE

PATIENT
  Age: 71 Year
  Sex: Male

DRUGS (6)
  1. MABCAMPATH [Suspect]
     Indication: CHRONIC LYMPHOCYTIC LEUKAEMIA
     Route: 042
     Dates: start: 20071029, end: 20080207
  2. MABCAMPATH [Suspect]
     Dates: start: 20080131, end: 20080207
  3. DEXAMETHASONE TAB [Concomitant]
     Indication: CHRONIC LYMPHOCYTIC LEUKAEMIA
  4. FLUCONAZOLE [Concomitant]
     Indication: DRUG USE FOR UNKNOWN INDICATION
  5. ACYCLOVIR [Concomitant]
     Indication: DRUG USE FOR UNKNOWN INDICATION
  6. COTRIM [Concomitant]
     Indication: DRUG USE FOR UNKNOWN INDICATION

REACTIONS (1)
  - NEUTROPENIA [None]
